FAERS Safety Report 4662336-9 (Version None)
Quarter: 2005Q2

REPORT INFORMATION
  Report Type: 
  Country: None (occurrence: None)
  Receive Date: 20050516
  Receipt Date: 20050308
  Transmission Date: 20051028
  Serious: Yes (Life-Threatening)
  Sender: FDA-Public Use
  Company Number: JP-BOEHRINGER INGELHEIM PHARMACEUTICALS, INC.-2005-BP-03752NB

PATIENT
  Sex: Male

DRUGS (3)
  1. MOBIC [Suspect]
     Indication: PERIARTHRITIS
     Route: 048
     Dates: start: 20050215, end: 20050220
  2. XYLOCAINE [Concomitant]
     Indication: PERIARTHRITIS
     Route: 065
     Dates: start: 20050215
  3. KETOPROFEN [Concomitant]
     Indication: PERIARTHRITIS
     Route: 062
     Dates: start: 20050215

REACTIONS (1)
  - GASTRIC ULCER HAEMORRHAGE [None]
